FAERS Safety Report 5055221-4 (Version None)
Quarter: 2006Q3

REPORT INFORMATION
  Report Type: 
  Country: None (occurrence: None)
  Receive Date: 20060714
  Receipt Date: 20060707
  Transmission Date: 20061208
  Serious: Yes (Hospitalization, Other)
  Sender: FDA-Public Use
  Company Number: ESWYE416621FEB06

PATIENT
  Age: 68 Year
  Sex: Male

DRUGS (8)
  1. RAPAMUNE [Suspect]
     Indication: PROPHYLAXIS AGAINST TRANSPLANT REJECTION
     Dosage: 6 MG 1X PER 1 DAY
     Route: 048
     Dates: start: 20031025
  2. METHYLPREDNISOLONE [Concomitant]
  3. CELLCEPT [Concomitant]
  4. OMEPRAZOLE [Concomitant]
  5. PREDNISONE [Concomitant]
  6. DISTRANEURINE (CLOMETHIAZOLE EDISILATE) [Concomitant]
  7. MYCOSTATIN [Concomitant]
  8. RISPERDAL [Concomitant]

REACTIONS (1)
  - HERNIAL EVENTRATION [None]
